FAERS Safety Report 18694543 (Version 1)
Quarter: 2020Q4

REPORT INFORMATION
  Report Type: Spontaneous
  Country: US (occurrence: US)
  Receive Date: 20201231
  Receipt Date: 20201231
  Transmission Date: 20210114
  Serious: Yes (Death)
  Sender: FDA-Public Use
  Company Number: None

PATIENT
  Age: 76 Year
  Sex: Male

DRUGS (13)
  1. PANTOPRAZOLE [Concomitant]
     Active Substance: PANTOPRAZOLE
  2. POTASSIUM [Concomitant]
     Active Substance: POTASSIUM
  3. ADCIRCA [Concomitant]
     Active Substance: TADALAFIL
  4. ESCITALOPRAM [Concomitant]
     Active Substance: ESCITALOPRAM OXALATE
  5. SIMVASTATIN. [Concomitant]
     Active Substance: SIMVASTATIN
  6. TORSEMIDE. [Concomitant]
     Active Substance: TORSEMIDE
  7. TRAMADOL. [Concomitant]
     Active Substance: TRAMADOL
  8. VISION [Concomitant]
  9. BUPROPION. [Concomitant]
     Active Substance: BUPROPION
  10. TADALAFIL. [Suspect]
     Active Substance: TADALAFIL
     Indication: PULMONARY ARTERIAL HYPERTENSION
     Route: 048
  11. MULTI-VITAMIN [Concomitant]
     Active Substance: .ALPHA.-TOCOPHEROL ACETATE, DL-\ASCORBIC ACID\CYANOCOBALAMIN\FLUORIDE ION\FOLIC ACID\NIACIN\PYRIDOXINE\RIBOFLAVIN\THIAMINE\VITAMIN A\VITAMIN D
  12. UPTRAVI [Concomitant]
     Active Substance: SELEXIPAG
  13. SPIRONOLACTONE. [Concomitant]
     Active Substance: SPIRONOLACTONE

REACTIONS (1)
  - Death [None]

NARRATIVE: CASE EVENT DATE: 20201229
